FAERS Safety Report 25583188 (Version 1)
Quarter: 2025Q3

REPORT INFORMATION
  Report Type: Spontaneous
  Country: CN (occurrence: CN)
  Receive Date: 20250721
  Receipt Date: 20250721
  Transmission Date: 20251020
  Serious: Yes (Other)
  Sender: AMGEN
  Company Number: CN-PFIZER INC-PV202500084429

PATIENT
  Age: 38 Year
  Sex: Female
  Weight: 47.7 kg

DRUGS (1)
  1. ENBREL [Suspect]
     Active Substance: ETANERCEPT
     Indication: Immunomodulatory therapy
     Dosage: 25 MG, 1X/DAY
     Route: 058
     Dates: start: 20250629, end: 20250630

REACTIONS (4)
  - Muscular weakness [Recovering/Resolving]
  - Peripheral swelling [Recovering/Resolving]
  - Pain in extremity [Recovering/Resolving]
  - Off label use [Unknown]

NARRATIVE: CASE EVENT DATE: 20250629
